FAERS Safety Report 24741542 (Version 1)
Quarter: 2024Q4

REPORT INFORMATION
  Report Type: Spontaneous
  Country: TW (occurrence: TW)
  Receive Date: 20241217
  Receipt Date: 20241217
  Transmission Date: 20250114
  Serious: Yes (Other)
  Sender: CHEPLAPHARM
  Company Number: TW-ROCHE-10000145226

PATIENT
  Age: 67 Year
  Sex: Female

DRUGS (12)
  1. CAPECITABINE [Suspect]
     Active Substance: CAPECITABINE
     Indication: Breast cancer
  2. PACLITAXEL [Suspect]
     Active Substance: PACLITAXEL
     Indication: Breast cancer
  3. HERCEPTIN [Suspect]
     Active Substance: TRASTUZUMAB
     Indication: Breast cancer
  4. PERJETA [Suspect]
     Active Substance: PERTUZUMAB
     Indication: Breast cancer
  5. LEUCOVORIN [Suspect]
     Active Substance: LEUCOVORIN\LEUCOVORIN CALCIUM
     Indication: Breast cancer
  6. VINORELBINE [Suspect]
     Active Substance: VINORELBINE TARTRATE
     Indication: Breast cancer
  7. DOCETAXEL [Suspect]
     Active Substance: DOCETAXEL
     Indication: Breast cancer
  8. LAPATINIB [Suspect]
     Active Substance: LAPATINIB
     Indication: Breast cancer
  9. NERATINIB [Suspect]
     Active Substance: NERATINIB
     Indication: Breast cancer
  10. FEMARA [Suspect]
     Active Substance: LETROZOLE
     Dates: start: 20160524
  11. XGEVA [Suspect]
     Active Substance: DENOSUMAB
     Dates: start: 20160607
  12. UNSPECIFIED INGREDIENT [Suspect]
     Active Substance: UNSPECIFIED INGREDIENT
     Dates: start: 2020

REACTIONS (31)
  - Febrile neutropenia [Unknown]
  - Metastases to liver [Unknown]
  - Metastases to lung [Unknown]
  - Brain neoplasm [Unknown]
  - Chronic kidney disease [Unknown]
  - Diabetes mellitus [Unknown]
  - Intervertebral disc protrusion [Unknown]
  - Dizziness [Recovered/Resolved]
  - Nausea [Unknown]
  - Vomiting [Unknown]
  - Abdominal discomfort [Unknown]
  - Peripheral motor neuropathy [Unknown]
  - Pulmonary mass [Not Recovered/Not Resolved]
  - Breast neoplasm [Unknown]
  - Hypoaesthesia [Unknown]
  - Diarrhoea [Recovered/Resolved]
  - Pyrexia [Recovered/Resolved]
  - Asthenia [Unknown]
  - Intracranial mass [Unknown]
  - Cellulitis [Recovered/Resolved]
  - Epigastric discomfort [Unknown]
  - Pain in extremity [Unknown]
  - Gait inability [Recovered/Resolved]
  - Fatigue [Unknown]
  - Central nervous system lesion [Unknown]
  - Hepatomegaly [Unknown]
  - Muscular weakness [Recovered/Resolved]
  - Dysstasia [Unknown]
  - Weight decreased [Unknown]
  - Urinary tract infection [Unknown]
  - Skin erosion [Unknown]

NARRATIVE: CASE EVENT DATE: 20160802
